FAERS Safety Report 16608475 (Version 3)
Quarter: 2019Q3

REPORT INFORMATION
  Report Type: Spontaneous
  Country: US (occurrence: US)
  Receive Date: 20190722
  Receipt Date: 20190903
  Transmission Date: 20191004
  Serious: Yes (Other)
  Sender: FDA-Public Use
  Company Number: US-PFIZER INC-2019306870

PATIENT
  Age: 50 Year
  Sex: Female
  Weight: 63.49 kg

DRUGS (1)
  1. PREMARIN [Suspect]
     Active Substance: ESTROGENS, CONJUGATED
     Indication: VULVOVAGINAL DRYNESS
     Dosage: UNK
     Dates: start: 20190701

REACTIONS (7)
  - Malaise [Recovered/Resolved]
  - Insomnia [Recovered/Resolved]
  - Headache [Recovered/Resolved]
  - Vulvovaginal pruritus [Recovered/Resolved]
  - Vomiting [Recovered/Resolved]
  - Vaginal haemorrhage [Recovered/Resolved]
  - Fatigue [Recovered/Resolved]
